FAERS Safety Report 9726007 (Version 1)
Quarter: 2013Q4

REPORT INFORMATION
  Report Type: Spontaneous
  Country: US (occurrence: None)
  Receive Date: 20131202
  Receipt Date: 20131202
  Transmission Date: 20140711
  Serious: Yes (Hospitalization)
  Sender: FDA-Public Use
  Company Number: None

PATIENT
  Age: 69 Year
  Sex: Male

DRUGS (1)
  1. HYDROMORPHONE [Suspect]
     Indication: PAIN
     Dosage: OTHER  IV
     Route: 042
     Dates: start: 20131105, end: 20131106

REACTIONS (4)
  - Mental status changes [None]
  - Respiratory acidosis [None]
  - Somnolence [None]
  - Hypoxia [None]
